FAERS Safety Report 11240460 (Version 6)
Quarter: 2021Q2

REPORT INFORMATION
  Report Type: Spontaneous
  Country: US (occurrence: US)
  Receive Date: 20150706
  Receipt Date: 20210531
  Transmission Date: 20210716
  Serious: No
  Sender: FDA-Public Use
  Company Number: US-PFIZER INC-2015221439

PATIENT
  Age: 42 Year
  Sex: Female

DRUGS (4)
  1. SOMATULINE [LANREOTIDE] [Concomitant]
     Active Substance: LANREOTIDE
     Dosage: UNK
  2. COMATULINE [Concomitant]
     Dosage: UNK
  3. SOMAVERT [Suspect]
     Active Substance: PEGVISOMANT
     Indication: ACROMEGALY
     Dosage: UNK, WEEKLY
  4. SOMAVERT [Suspect]
     Active Substance: PEGVISOMANT
     Dosage: 20 MG, DAILY
     Route: 058
     Dates: start: 20200201

REACTIONS (3)
  - Drug ineffective [Recovered/Resolved]
  - Inappropriate schedule of product administration [Unknown]
  - Injection site pain [Unknown]
